FAERS Safety Report 20040416 (Version 1)
Quarter: 2021Q4

REPORT INFORMATION
  Report Type: Spontaneous
  Country: US (occurrence: None)
  Receive Date: 20211105
  Receipt Date: 20211105
  Transmission Date: 20220303
  Serious: No
  Sender: FDA-Public Use
  Company Number: None

PATIENT
  Age: 71 Year
  Sex: Female
  Weight: 75 kg

DRUGS (10)
  1. TEMOZOLOMIDE [Suspect]
     Active Substance: TEMOZOLOMIDE
     Indication: Brain neoplasm malignant
     Dosage: FREQUENCY : DAILY;?
     Route: 048
     Dates: start: 20211011
  2. TEMOZOLOMIDE [Suspect]
     Active Substance: TEMOZOLOMIDE
     Indication: Brain neoplasm malignant
     Dosage: FREQUENCY : DAILY;?
     Route: 048
     Dates: start: 20211011
  3. ATOVAQUONE [Concomitant]
     Active Substance: ATOVAQUONE
  4. HYDROCHLOROTHIAZIDE [Concomitant]
     Active Substance: HYDROCHLOROTHIAZIDE
  5. LEVETIRACETAM [Concomitant]
     Active Substance: LEVETIRACETAM
  6. LEVOTHYROXINE SODIUM [Concomitant]
     Active Substance: LEVOTHYROXINE SODIUM
  7. ONDANSETRON HCL [Concomitant]
     Active Substance: ONDANSETRON HYDROCHLORIDE
  8. TYLENOL EXTRA STRENGTH [Concomitant]
     Active Substance: ACETAMINOPHEN
  9. Vitamin C Plus [Concomitant]
  10. VITAMIN D3 [Concomitant]
     Active Substance: CHOLECALCIFEROL

REACTIONS (2)
  - Incorrect dose administered [None]
  - Liver function test increased [None]

NARRATIVE: CASE EVENT DATE: 20211011
